FAERS Safety Report 7836388-9 (Version None)
Quarter: 2011Q4

REPORT INFORMATION
  Report Type: 
  Country: None (occurrence: None)
  Receive Date: 20111024
  Receipt Date: 20110713
  Transmission Date: 20120403
  Serious: No
  Sender: FDA-Public Use
  Company Number: US-BAYER-2011-062242

PATIENT

DRUGS (3)
  1. ALCOHOL [Interacting]
     Dosage: 2 SHOTS
  2. ALEVE (CAPLET) [Suspect]
     Indication: PRODUCT USED FOR UNKNOWN INDICATION
     Dosage: 3 TABS
     Route: 048
     Dates: start: 20110713
  3. ALCOHOL [Interacting]
     Indication: PRODUCT USED FOR UNKNOWN INDICATION
     Dosage: 2 SHOTS
     Dates: start: 20110713

REACTIONS (2)
  - ALCOHOL INTERACTION [None]
  - MEDICATION ERROR [None]
